FAERS Safety Report 12186274 (Version 1)
Quarter: 2016Q1

REPORT INFORMATION
  Report Type: Spontaneous
  Country: CA (occurrence: CA)
  Receive Date: 20160317
  Receipt Date: 20160317
  Transmission Date: 20160526
  Serious: Yes (Other)
  Sender: FDA-Public Use
  Company Number: CA-AMGEN-CANSP2016032720

PATIENT
  Age: 61 Year
  Sex: Female

DRUGS (3)
  1. ENBREL [Suspect]
     Active Substance: ETANERCEPT
     Indication: RHEUMATOID ARTHRITIS
  2. METHOTREXATE [Concomitant]
     Active Substance: METHOTREXATE
     Dosage: UNK
     Dates: end: 20160308
  3. ENBREL [Suspect]
     Active Substance: ETANERCEPT
     Indication: JUVENILE IDIOPATHIC ARTHRITIS
     Dosage: UNK
     Route: 065

REACTIONS (9)
  - Ankle arthroplasty [Unknown]
  - Arthralgia [Unknown]
  - Peripheral swelling [Unknown]
  - Psoriasis [Unknown]
  - Knee arthroplasty [Unknown]
  - Drug ineffective [Unknown]
  - Pain in extremity [Unknown]
  - Abdominal discomfort [Unknown]
  - Hip arthroplasty [Unknown]
